FAERS Safety Report 14555423 (Version 2)
Quarter: 2018Q3

REPORT INFORMATION
  Report Type: Report from Study
  Country: US (occurrence: US)
  Receive Date: 20180220
  Receipt Date: 20180806
  Transmission Date: 20181010
  Serious: No
  Sender: FDA-Public Use
  Company Number: PHEH2018US005880

PATIENT
  Sex: Female

DRUGS (1)
  1. COSENTYX [Suspect]
     Active Substance: SECUKINUMAB
     Indication: PSORIATIC ARTHROPATHY
     Dosage: 150 MG, QMO
     Route: 058

REACTIONS (14)
  - Constipation [Unknown]
  - Sinusitis [Unknown]
  - Joint injury [Unknown]
  - Pain in extremity [Unknown]
  - Dry skin [Unknown]
  - Drug ineffective [Unknown]
  - Muscle swelling [Unknown]
  - Pruritus generalised [Unknown]
  - Injection site haemorrhage [Unknown]
  - Abdominal discomfort [Unknown]
  - Diarrhoea [Unknown]
  - Inappropriate schedule of drug administration [Unknown]
  - Viral infection [Unknown]
  - Bone pain [Unknown]
